FAERS Safety Report 18613809 (Version 1)
Quarter: 2020Q4

REPORT INFORMATION
  Report Type: Spontaneous
  Country: US (occurrence: US)
  Receive Date: 20201214
  Receipt Date: 20201214
  Transmission Date: 20210114
  Serious: No
  Sender: FDA-Public Use
  Company Number: US-NOVOPROD-713761

PATIENT
  Age: 75 Year
  Sex: Male

DRUGS (2)
  1. NOVOLOG [Concomitant]
     Active Substance: INSULIN ASPART
     Indication: TYPE 2 DIABETES MELLITUS
     Dosage: SLIDING SCALE
     Route: 058
     Dates: start: 201804
  2. LEVEMIR [Suspect]
     Active Substance: INSULIN DETEMIR
     Indication: TYPE 2 DIABETES MELLITUS
     Dosage: 25 UNITS IN THE AM AND 20 UNITS IN PM
     Route: 058
     Dates: start: 201804

REACTIONS (4)
  - Drug ineffective [Unknown]
  - Hypoacusis [Unknown]
  - Product quality issue [Unknown]
  - Blood glucose fluctuation [Unknown]
